FAERS Safety Report 14623038 (Version 1)
Quarter: 2018Q1

REPORT INFORMATION
  Report Type: Not Available
  Country: US (occurrence: US)
  Receive Date: 20180311
  Receipt Date: 20180311
  Transmission Date: 20180509
  Serious: No
  Sender: FDA-Public Use
  Company Number: US-NEUROCRINE BIOSCIENCES INC.-2018NBI00257

PATIENT
  Age: 71 Year
  Sex: Female

DRUGS (1)
  1. INGREZZA [Suspect]
     Active Substance: VALBENAZINE
     Indication: PRODUCT USED FOR UNKNOWN INDICATION
     Route: 048
     Dates: start: 20171226, end: 20171230

REACTIONS (3)
  - Dizziness [Unknown]
  - Drug ineffective [None]
  - Somnolence [Unknown]

NARRATIVE: CASE EVENT DATE: 20171227
